FAERS Safety Report 4889043-1 (Version None)
Quarter: 2005Q4

REPORT INFORMATION
  Report Type: 
  Country: None (occurrence: None)
  Receive Date: 20051215
  Receipt Date: 20041108
  Transmission Date: 20060501
  Serious: Yes (Other)
  Sender: FDA-Public Use
  Company Number: 2004116448

PATIENT
  Age: 70 Year
  Sex: Female

DRUGS (2)
  1. BEXTRA [Suspect]
     Indication: PAIN IN EXTREMITY
     Dates: start: 20040406, end: 20040419
  2. BEXTRA [Suspect]
     Indication: SHOULDER PAIN
     Dates: start: 20040406, end: 20040419

REACTIONS (2)
  - HEADACHE [None]
  - HYPERTENSION [None]
